FAERS Safety Report 17249241 (Version 2)
Quarter: 2020Q1

REPORT INFORMATION
  Report Type: Spontaneous
  Country: BR (occurrence: BR)
  Receive Date: 20200108
  Receipt Date: 20200217
  Transmission Date: 20200409
  Serious: Yes (Hospitalization, Other)
  Sender: FDA-Public Use
  Company Number: BR-PFIZER INC-2020006853

PATIENT
  Age: 47 Year
  Sex: Female
  Weight: 59.4 kg

DRUGS (2)
  1. GENOTROPIN [Suspect]
     Active Substance: SOMATROPIN
     Indication: GROWTH HORMONE DEFICIENCY
  2. GENOTROPIN [Suspect]
     Active Substance: SOMATROPIN
     Indication: HYPERTROPHY
     Dosage: UNK
     Dates: start: 201910

REACTIONS (4)
  - Apnoea [Recovered/Resolved]
  - Muscle injury [Recovered/Resolved]
  - Arthralgia [Recovered/Resolved]
  - Limb injury [Recovered/Resolved]

NARRATIVE: CASE EVENT DATE: 2019
